FAERS Safety Report 4912243-9 (Version None)
Quarter: 2006Q1

REPORT INFORMATION
  Report Type: 
  Country: None (occurrence: None)
  Receive Date: 20060215
  Receipt Date: 20051110
  Transmission Date: 20060701
  Serious: No
  Sender: FDA-Public Use
  Company Number: US-GLAXOSMITHKLINE-A0581810A

PATIENT
  Age: 80 Year
  Sex: Male

DRUGS (7)
  1. VALTREX [Suspect]
     Dosage: 1G THREE TIMES PER DAY
     Route: 048
     Dates: start: 20051024, end: 20051031
  2. ENALAPRIL [Concomitant]
  3. SYNTHROID [Concomitant]
  4. ZOCOR [Concomitant]
  5. SPIRIVA [Concomitant]
  6. ADVAIR DISKUS 100/50 [Concomitant]
  7. ALBUTEROL [Concomitant]

REACTIONS (9)
  - ANOREXIA [None]
  - DIARRHOEA [None]
  - DYSKINESIA [None]
  - DYSPHONIA [None]
  - FATIGUE [None]
  - NASOPHARYNGITIS [None]
  - NAUSEA [None]
  - NIGHTMARE [None]
  - VOMITING [None]
